FAERS Safety Report 8466572 (Version 3)
Quarter: 2013Q4

REPORT INFORMATION
  Report Type: Report from Study
  Country: AU (occurrence: AU)
  Receive Date: 20120319
  Receipt Date: 20131218
  Transmission Date: 20140711
  Serious: Yes (Hospitalization)
  Sender: FDA-Public Use
  Company Number: AU-PFIZER INC-2012063736

PATIENT
  Age: 40 Year
  Sex: Female
  Weight: 65.9 kg

DRUGS (8)
  1. VARENICLINE TARTRATE [Suspect]
     Indication: SMOKING CESSATION THERAPY
     Dosage: 0.5 MG, 1X/DAY
     Route: 048
     Dates: start: 20120203, end: 20120205
  2. VARENICLINE TARTRATE [Suspect]
     Dosage: 0.5 MG, 2X/DAY
     Route: 048
     Dates: start: 20120223, end: 20120223
  3. VARENICLINE TARTRATE [Suspect]
     Dosage: 0.5 MG (2 TABLETS) 2X/DAY
     Route: 048
     Dates: start: 20120224, end: 20120315
  4. DEPO-PROVERA [Suspect]
     Indication: CONTRACEPTION
     Dosage: UNK, EVERY 3 MONTHS
     Route: 030
     Dates: start: 201103
  5. LEXAPRO [Suspect]
     Indication: DEPRESSION
     Dosage: 20 MG, DAILY
     Route: 048
     Dates: start: 201101
  6. CYMBALTA [Suspect]
     Indication: LETHARGY
     Dosage: 30 MG, DAILY
     Route: 048
     Dates: start: 20120227, end: 20120312
  7. THYROXINE [Concomitant]
     Indication: HYPOTHYROIDISM
     Dosage: 50 MG, DAILY
     Route: 048
     Dates: start: 201101
  8. ESOMEPRAZOLE [Concomitant]
     Indication: REFLUX GASTRITIS
     Dosage: 20 MG, AS NEEDED
     Route: 048
     Dates: start: 20120223, end: 20120226

REACTIONS (1)
  - Migraine [Recovered/Resolved]
